FAERS Safety Report 10301356 (Version 1)
Quarter: 2014Q3

REPORT INFORMATION
  Report Type: Spontaneous
  Country: US (occurrence: None)
  Receive Date: 20140709
  Receipt Date: 20140709
  Transmission Date: 20150326
  Serious: Yes (Hospitalization)
  Sender: FDA-Public Use
  Company Number: None

PATIENT
  Age: 55 Year
  Sex: Male
  Weight: 92.7 kg

DRUGS (1)
  1. HYDROCHLOROTHIAZIDE. [Suspect]
     Active Substance: HYDROCHLOROTHIAZIDE
     Indication: HYPERTENSION
     Dosage: 1/2 TAB  EVERY DAY  PO
     Route: 048
     Dates: start: 20140206, end: 20140421

REACTIONS (3)
  - Confusional state [None]
  - Hyponatraemia [None]
  - Mental status changes [None]

NARRATIVE: CASE EVENT DATE: 20140421
